FAERS Safety Report 4641088-2 (Version None)
Quarter: 2005Q2

REPORT INFORMATION
  Report Type: 
  Country: None (occurrence: None)
  Receive Date: 20050324
  Receipt Date: 20050128
  Transmission Date: 20051028
  Serious: Yes (Disabling)
  Sender: FDA-Public Use
  Company Number: 212096

PATIENT
  Age: 77 Year
  Sex: Female
  Weight: 80.3 kg

DRUGS (3)
  1. AVASTIN [Suspect]
     Indication: COLON CANCER METASTATIC
     Dosage: 380 MG, Q2W, INTRAVENOUS
     Route: 042
     Dates: start: 20041006, end: 20041222
  2. FLUOROURACIL [Concomitant]
  3. LEUCOVORIN CALCIUM [Concomitant]

REACTIONS (1)
  - EMBOLISM [None]
